FAERS Safety Report 6847377-5 (Version None)
Quarter: 2010Q3

REPORT INFORMATION
  Report Type: 
  Country: None (occurrence: None)
  Receive Date: 20100716
  Receipt Date: 20100708
  Transmission Date: 20110219
  Serious: Yes (Hospitalization)
  Sender: FDA-Public Use
  Company Number: IT-ASTRAZENECA-2010SE32035

PATIENT
  Age: 24980 Day
  Sex: Male

DRUGS (9)
  1. SEROQUEL [Suspect]
     Indication: DRUG ADMINISTRATION ERROR
     Route: 048
     Dates: start: 20100629, end: 20100629
  2. ENAPREN [Suspect]
     Indication: HYPERTENSION
     Route: 048
     Dates: start: 20080629
  3. ENAPREN [Suspect]
     Route: 048
  4. CONGESCOR [Suspect]
     Route: 048
     Dates: start: 20080629
  5. CORDARONE [Suspect]
     Route: 048
     Dates: start: 20080629
  6. LASIX [Concomitant]
  7. LASITONE [Concomitant]
  8. ASCRIPTIN [Concomitant]
  9. MONOKET [Concomitant]

REACTIONS (3)
  - HYPERHIDROSIS [None]
  - HYPOTENSION [None]
  - PRESYNCOPE [None]
